FAERS Safety Report 4806612-5 (Version None)
Quarter: 2005Q4

REPORT INFORMATION
  Report Type: 
  Country: None (occurrence: None)
  Receive Date: 20051021
  Receipt Date: 20051010
  Transmission Date: 20060501
  Serious: Yes (Death)
  Sender: FDA-Public Use
  Company Number: US-JNJFOC-20050300197

PATIENT
  Sex: Female
  Weight: 147.42 kg

DRUGS (4)
  1. ORTHO EVRA [Suspect]
     Indication: ENDOMETRIOSIS
     Route: 062
  2. ATENOLOL [Concomitant]
  3. ZOLOFT [Concomitant]
  4. LEVSIN [Concomitant]

REACTIONS (3)
  - PULMONARY EMBOLISM [None]
  - PULMONARY VASCULAR DISORDER [None]
  - RESPIRATORY ARREST [None]
